FAERS Safety Report 13993088 (Version 3)
Quarter: 2019Q1

REPORT INFORMATION
  Report Type: Report from Study
  Country: US (occurrence: US)
  Receive Date: 20170920
  Receipt Date: 20190118
  Transmission Date: 20190417
  Serious: Yes (Hospitalization)
  Sender: FDA-Public Use
  Company Number: US-JNJFOC-20170915060

PATIENT
  Age: 17 Year
  Sex: Male
  Weight: 52.1 kg

DRUGS (5)
  1. INFLIXIMAB, RECOMBINANT [Suspect]
     Active Substance: INFLIXIMAB
     Indication: INFLAMMATORY BOWEL DISEASE
     Route: 042
     Dates: start: 20160608, end: 20170316
  2. URSODIOL. [Concomitant]
     Active Substance: URSODIOL
     Route: 065
  3. METHOTREXATE. [Concomitant]
     Active Substance: METHOTREXATE
     Route: 065
  4. PREDNISONE. [Concomitant]
     Active Substance: PREDNISONE
     Route: 065
  5. ENTYVIO [Concomitant]
     Active Substance: VEDOLIZUMAB
     Route: 065
     Dates: start: 20170330

REACTIONS (2)
  - Colitis ulcerative [Recovered/Resolved with Sequelae]
  - Weight decreased [Recovered/Resolved]

NARRATIVE: CASE EVENT DATE: 20170719
